FAERS Safety Report 15859223 (Version 2)
Quarter: 2019Q3

REPORT INFORMATION
  Report Type: Report from Study
  Country: IT (occurrence: IT)
  Receive Date: 20190123
  Receipt Date: 20190726
  Transmission Date: 20191004
  Serious: Yes (Other)
  Sender: FDA-Public Use
  Company Number: IT-JAZZ-2018-IT-018261

PATIENT
  Age: 65 Year

DRUGS (14)
  1. VYXEOS [Suspect]
     Active Substance: CYTARABINE\DAUNORUBICIN
     Indication: ACUTE MYELOID LEUKAEMIA
     Dosage: 64.2-146MG, DAY 1,3,5
     Route: 042
     Dates: start: 20181207, end: 20181211
  2. AKYNZEO [Concomitant]
     Active Substance: NETUPITANT\PALONOSETRON HYDROCHLORIDE
     Indication: PROPHYLAXIS
     Dosage: 300 MG, DAY 1, 3, 5
     Route: 048
     Dates: start: 20181207, end: 20181211
  3. VALACICLOVIR [Concomitant]
     Active Substance: VALACYCLOVIR HYDROCHLORIDE
     Indication: PROPHYLAXIS
     Dosage: 1 G, TID
     Route: 048
     Dates: start: 20181206, end: 20181211
  4. LEVOTHYROXINE. [Concomitant]
     Active Substance: LEVOTHYROXINE
     Indication: THYROID DISORDER
     Dosage: 100 MG, QD (MON-SAT)
     Route: 048
  5. TIGECYCLINE. [Concomitant]
     Active Substance: TIGECYCLINE
     Indication: PLEURAL THICKENING
     Dosage: 50 MG, BID
     Route: 042
     Dates: start: 20181118, end: 20181128
  6. TAZOCIN [Concomitant]
     Active Substance: PIPERACILLIN SODIUM\TAZOBACTAM SODIUM
     Indication: PLEURAL THICKENING
     Dosage: 4.5 MG, TID
     Route: 042
     Dates: start: 20181119, end: 20181120
  7. LEVOFLOXACINE                      /01278901/ [Concomitant]
     Active Substance: LEVOFLOXACIN
     Indication: PROPHYLAXIS
     Dosage: 500 MG, QD
     Route: 042
     Dates: start: 20181128, end: 20181220
  8. KANRENOL [Concomitant]
     Active Substance: CANRENOATE POTASSIUM
     Indication: HYPERTENSION
     Dosage: 200 MG, QD
     Route: 042
     Dates: start: 20181204, end: 20181215
  9. CANCIDAS [Concomitant]
     Active Substance: CASPOFUNGIN ACETATE
     Indication: PLEURAL THICKENING
     Dosage: 70 MG, QD
     Route: 042
     Dates: start: 20181207, end: 20181207
  10. CANCIDAS [Concomitant]
     Active Substance: CASPOFUNGIN ACETATE
     Dosage: 50 MG, QD
     Route: 042
     Dates: start: 20181208, end: 20181227
  11. ACICLOVIR [Concomitant]
     Active Substance: ACYCLOVIR
     Indication: PROPHYLAXIS
     Dosage: 800 MG, QD
     Route: 048
     Dates: start: 20181117, end: 20181205
  12. MEROPENEM. [Concomitant]
     Active Substance: MEROPENEM
     Indication: PLEURAL THICKENING
     Dosage: 2 G, TID
     Route: 042
     Dates: start: 20181120, end: 20181128
  13. VALACICLOVIR [Concomitant]
     Active Substance: VALACYCLOVIR HYDROCHLORIDE
     Dosage: 1 G, QD
     Route: 048
     Dates: start: 20181212, end: 20190115
  14. AMFOTERICINA B [Concomitant]
     Indication: PLEURAL THICKENING
     Dosage: 160 MG, QD
     Route: 042
     Dates: start: 20181119, end: 20181206

REACTIONS (4)
  - Sepsis [Unknown]
  - Medication error [Recovered/Resolved]
  - Pneumonia [Unknown]
  - Product storage error [Recovered/Resolved]

NARRATIVE: CASE EVENT DATE: 20181204
